FAERS Safety Report 4899840-4 (Version None)
Quarter: 2006Q1

REPORT INFORMATION
  Report Type: 
  Country: None (occurrence: None)
  Receive Date: 20060120
  Receipt Date: 20050926
  Transmission Date: 20060701
  Serious: No
  Sender: FDA-Public Use
  Company Number: 2005134962

PATIENT
  Age: 44 Year
  Sex: Female
  Weight: 78.9259 kg

DRUGS (7)
  1. SOMAVERT [Suspect]
     Indication: ACROMEGALY
     Dosage: 20 MG (20 MG,EVERYDAY)
     Dates: start: 20050301
  2. LIPITOR [Concomitant]
  3. LEXAPRO [Concomitant]
  4. LISINOPRIL [Concomitant]
  5. SANDOSTATIN LAR [Concomitant]
  6. MULTIVITAMIN [Concomitant]
  7. CALCIUM (CALCIUM) [Concomitant]

REACTIONS (1)
  - LIPOHYPERTROPHY [None]
